FAERS Safety Report 8295692-3 (Version None)
Quarter: 2012Q2

REPORT INFORMATION
  Report Type: 
  Country: None (occurrence: None)
  Receive Date: 20120416
  Receipt Date: 20120330
  Transmission Date: 20120825
  Serious: Yes (Other)
  Sender: FDA-Public Use
  Company Number: 2012MA003023

PATIENT
  Age: 66 Year
  Sex: Male

DRUGS (3)
  1. VIAGRA [Suspect]
     Indication: PRODUCT USED FOR UNKNOWN INDICATION
     Dates: start: 20120201
  2. LEVOTHYROXINE SODIUM [Concomitant]
  3. SPIRONOLACTONE [Suspect]
     Indication: PRODUCT USED FOR UNKNOWN INDICATION
     Dosage: 25 MG
     Dates: start: 20070101

REACTIONS (3)
  - GASTROINTESTINAL DISORDER [None]
  - DRUG INEFFECTIVE [None]
  - LIVER DISORDER [None]
